FAERS Safety Report 7611752-1 (Version None)
Quarter: 2011Q3

REPORT INFORMATION
  Report Type: 
  Country: None (occurrence: None)
  Receive Date: 20110715
  Receipt Date: 20110707
  Transmission Date: 20111222
  Serious: Yes (Death)
  Sender: FDA-Public Use
  Company Number: GB-GLAXOSMITHKLINE-B0512168A

PATIENT
  Sex: Male
  Weight: 88 kg

DRUGS (4)
  1. AMOXICILLIN [Concomitant]
     Indication: INFECTION
  2. IMIGRAN RECOVERY [Suspect]
     Indication: MIGRAINE
  3. ACETAMINOPHEN [Concomitant]
  4. IBUPROFEN [Concomitant]

REACTIONS (1)
  - SUDDEN DEATH [None]
